FAERS Safety Report 18339341 (Version 1)
Quarter: 2020Q4

REPORT INFORMATION
  Report Type: Spontaneous
  Country: US (occurrence: US)
  Receive Date: 20201002
  Receipt Date: 20201002
  Transmission Date: 20210113
  Serious: No
  Sender: FDA-Public Use
  Company Number: None

PATIENT
  Age: 75 Year
  Sex: Female

DRUGS (16)
  1. NINLARO [Suspect]
     Active Substance: IXAZOMIB CITRATE
     Indication: PLASMA CELL MYELOMA
     Dosage: ?          OTHER FREQUENCY:ONCE WEEKLY X 3WKS;?
     Route: 048
     Dates: start: 20200917
  2. REVLIMID [Concomitant]
     Active Substance: LENALIDOMIDE
  3. CENTRUM SILVER [Concomitant]
     Active Substance: MINERALS\VITAMINS
  4. LOSARTAN. [Concomitant]
     Active Substance: LOSARTAN
  5. APAP [Concomitant]
     Active Substance: ACETAMINOPHEN
  6. DEXAMETHASONE. [Concomitant]
     Active Substance: DEXAMETHASONE
  7. ZOMETA [Concomitant]
     Active Substance: ZOLEDRONIC ACID
  8. AMLODIPINE [Concomitant]
     Active Substance: AMLODIPINE BESYLATE
  9. KYPROLIS [Concomitant]
     Active Substance: CARFILZOMIB
  10. ONDANSETRON [Concomitant]
     Active Substance: ONDANSETRON
  11. TRAMADOL. [Concomitant]
     Active Substance: TRAMADOL
  12. HCTZ [Concomitant]
     Active Substance: HYDROCHLOROTHIAZIDE
  13. ASPIRIN. [Concomitant]
     Active Substance: ASPIRIN
  14. VITAMIN B6 [Concomitant]
     Active Substance: PYRIDOXINE HYDROCHLORIDE
  15. FERROUS SULFATE. [Concomitant]
     Active Substance: FERROUS SULFATE
  16. POTASSIUM [Concomitant]
     Active Substance: POTASSIUM

REACTIONS (1)
  - Diarrhoea [None]

NARRATIVE: CASE EVENT DATE: 20200929
